FAERS Safety Report 5083881-0 (Version None)
Quarter: 2006Q3

REPORT INFORMATION
  Report Type: 
  Country: None (occurrence: None)
  Receive Date: 20060727
  Receipt Date: 20060420
  Transmission Date: 20061208
  Serious: Yes (Other)
  Sender: FDA-Public Use
  Company Number: 2006054704

PATIENT
  Age: 51 Year
  Sex: Female
  Weight: 99.7913 kg

DRUGS (8)
  1. LYRICA [Suspect]
     Indication: SCIATICA
     Dosage: 300 MG (150 MG, 2 IN 1 D), ORAL
     Route: 048
     Dates: start: 20051214
  2. BUPROPION HYDROCHLORIDE [Concomitant]
  3. GLIPIZIDE [Concomitant]
  4. CLONAZEPAM [Concomitant]
  5. AVANDIA [Concomitant]
  6. METFORMIN HCL [Concomitant]
  7. REMERON [Concomitant]
  8. DEPAKOTE [Concomitant]

REACTIONS (3)
  - CONFUSIONAL STATE [None]
  - FEELING JITTERY [None]
  - HYPOAESTHESIA [None]
